FAERS Safety Report 23692266 (Version 1)
Quarter: 2024Q2

REPORT INFORMATION
  Report Type: Spontaneous
  Country: US (occurrence: US)
  Receive Date: 20240401
  Receipt Date: 20240401
  Transmission Date: 20240716
  Serious: No
  Sender: FDA-Public Use
  Company Number: US-SENTISSAG-2024SAGSPO-00007

PATIENT
  Sex: Female

DRUGS (1)
  1. LOTEPREDNOL ETABONATE [Suspect]
     Active Substance: LOTEPREDNOL ETABONATE
     Indication: Blepharitis

REACTIONS (3)
  - Eyelids pruritus [Unknown]
  - Eyelid irritation [Unknown]
  - Swelling of eyelid [Unknown]
